FAERS Safety Report 14600059 (Version 2)
Quarter: 2018Q1

REPORT INFORMATION
  Report Type: Spontaneous
  Country: FR (occurrence: FR)
  Receive Date: 20180305
  Receipt Date: 20180308
  Transmission Date: 20180509
  Serious: Yes (Other)
  Sender: FDA-Public Use
  Company Number: FR-PFIZER INC-2018086390

PATIENT
  Age: 60 Year
  Sex: Male

DRUGS (35)
  1. OXYCONTIN [Interacting]
     Active Substance: OXYCODONE HYDROCHLORIDE
     Dosage: 560 MG, UNK  (2 TABLETS OF 120 MG TWICE A DAYAND 1 TABLET OF 40 MG TWICE A DAY)
  2. OXYCONTIN [Interacting]
     Active Substance: OXYCODONE HYDROCHLORIDE
     Dosage: 2 DF, 1X/DAY
     Route: 065
  3. IXEL [Concomitant]
     Active Substance: MILNACIPRAN HYDROCHLORIDE
     Indication: DEPRESSION
     Dosage: 50 MG, 2X/DAY
     Dates: start: 20170829
  4. INEXIUM [Concomitant]
     Active Substance: ESOMEPRAZOLE
     Dosage: 40 MG, 1X/DAY
     Dates: start: 20170829
  5. TEGRETOL [Concomitant]
     Active Substance: CARBAMAZEPINE
     Dosage: 200 MG, 2X/DAY
     Dates: start: 20170829
  6. PROPRANOLOL [Concomitant]
     Active Substance: PROPRANOLOL HYDROCHLORIDE
     Dosage: 40 MG, 1X/DAY
     Dates: start: 20170829
  7. PERMIXON [Concomitant]
     Active Substance: HERBALS\SAW PALMETTO
     Indication: PROSTATOMEGALY
     Dosage: 160 MG, 1X/DAY
     Dates: start: 20170829
  8. FLUCONAZOLE. [Suspect]
     Active Substance: FLUCONAZOLE
     Dosage: UNK
     Route: 065
     Dates: start: 20171102
  9. OXYCONTIN [Interacting]
     Active Substance: OXYCODONE HYDROCHLORIDE
     Dosage: 4 DF, DAILY
  10. FUNGIZONE [Concomitant]
     Active Substance: AMPHOTERICIN B
     Dosage: 1 DF, 1X/DAY
     Dates: start: 20171102
  11. VENTOLINE [Concomitant]
     Active Substance: ALBUTEROL
     Dosage: UNK
     Dates: start: 20171102
  12. FORSTEO [Concomitant]
     Active Substance: TERIPARATIDE
     Indication: OSTEOPOROSIS
     Dosage: 1 DF, MONTHLY
     Dates: start: 201702
  13. LOVENOX [Concomitant]
     Active Substance: ENOXAPARIN SODIUM
     Dosage: 1 DF, 1X/DAY
     Dates: start: 20171108, end: 20171120
  14. FENOFIBRATE. [Concomitant]
     Active Substance: FENOFIBRATE
     Indication: BLOOD CHOLESTEROL
     Dosage: 300 MG, 1X/DAY
     Dates: start: 20170829
  15. FUROSEMIDE. [Concomitant]
     Active Substance: FUROSEMIDE
     Dosage: 60 MG, 1X/DAY
  16. OXYCONTIN [Interacting]
     Active Substance: OXYCODONE HYDROCHLORIDE
     Dosage: 6 DF, DAILY
     Route: 065
  17. SERETIDE [Concomitant]
     Active Substance: FLUTICASONE PROPIONATE\SALMETEROL XINAFOATE
     Indication: ASTHMA
     Dosage: 3 DF, 1X/DAY
     Dates: start: 20170829
  18. METEOSPASMYL [Concomitant]
     Active Substance: ALVERINE CITRATE\DIMETHICONE
     Dosage: UNK
     Dates: start: 20171102
  19. POTASSIUM [Concomitant]
     Active Substance: POTASSIUM
     Dosage: 4,UNK, 1X/DAY
     Dates: start: 20170829
  20. DUPHALAC [Concomitant]
     Active Substance: LACTULOSE
     Dosage: UNK
  21. CALCIUM [Concomitant]
     Active Substance: CALCIUM
     Dosage: 1 DF, 2X/DAY
     Dates: start: 20171102
  22. FINASTERIDE. [Concomitant]
     Active Substance: FINASTERIDE
     Indication: PROSTATOMEGALY
     Dosage: 1 DF, 1X/DAY
     Dates: start: 20170829
  23. AERIUS [Concomitant]
     Active Substance: DESLORATADINE
     Dosage: 5 MG, 2X/DAY
     Dates: start: 20170829
  24. GABAPENTINE [Concomitant]
     Active Substance: GABAPENTIN
     Dosage: 100 MG, UNK, SIX TIMES A DAY
     Dates: start: 20170829
  25. OPTIJECT [Concomitant]
     Active Substance: IOVERSOL
     Indication: SCAN
     Dosage: 1 DF, SINGLE [ONLY ONCE]
     Dates: start: 20171108
  26. MORPHINE [Suspect]
     Active Substance: MORPHINE
     Dosage: UNK
     Route: 042
  27. DAFLON (DIOSMIN/HESPERIDIN) [Concomitant]
     Active Substance: DIOSMIN\HESPERIDIN
     Dosage: 500 MG, 3X/DAY
     Dates: start: 20170829
  28. OXYCONTIN [Interacting]
     Active Substance: OXYCODONE HYDROCHLORIDE
     Dosage: 20 MG, UNK
     Route: 065
  29. SPIRIVA [Concomitant]
     Active Substance: TIOTROPIUM BROMIDE MONOHYDRATE
     Indication: CHRONIC OBSTRUCTIVE PULMONARY DISEASE
     Dosage: 18 UG, 1X/DAY
     Dates: start: 20170829
  30. PREVISCAN (FLUINDIONE) [Concomitant]
     Active Substance: FLUINDIONE
     Dosage: 0.5 DF(TABLET), 1X/DAY
     Dates: start: 20170829
  31. BIRODOGYL [Concomitant]
     Active Substance: METRONIDAZOLE\SPIRAMYCIN
     Indication: TOOTH ABSCESS
     Dosage: 3 DF, 1X/DAY
     Route: 048
     Dates: start: 20171024, end: 20171107
  32. CARBOLEVURE [Concomitant]
     Active Substance: ACTIVATED CHARCOAL\YEAST
     Dosage: UNK,FROM 2 TO 3 DAYS
     Dates: start: 20171102
  33. ALFUZOSINE L.P. [Concomitant]
     Active Substance: ALFUZOSIN HYDROCHLORIDE
     Dosage: 10 MG, 1X/DAY
     Dates: start: 20170829
  34. TANAKAN [Concomitant]
     Active Substance: GINKGO
     Dosage: 3 DF, 1X/DAY
     Dates: start: 20170829
  35. METFORMINE [Concomitant]
     Active Substance: METFORMIN HYDROCHLORIDE
     Indication: DIABETES MELLITUS
     Dosage: 1000 MG, 2X/DAY
     Dates: start: 20170829

REACTIONS (5)
  - Drug ineffective [Recovered/Resolved]
  - Drug abuse [Not Recovered/Not Resolved]
  - Drug interaction [Unknown]
  - Drug withdrawal syndrome [Unknown]
  - Drug dependence [Not Recovered/Not Resolved]

NARRATIVE: CASE EVENT DATE: 201711
